FAERS Safety Report 7741917-X (Version None)
Quarter: 2011Q3

REPORT INFORMATION
  Report Type: 
  Country: None (occurrence: None)
  Receive Date: 20110912
  Receipt Date: 20110829
  Transmission Date: 20111222
  Serious: Yes (Other)
  Sender: FDA-Public Use
  Company Number: US-JNJFOC-20110813088

PATIENT
  Age: 31 Year
  Sex: Female
  Weight: 61.24 kg

DRUGS (5)
  1. ACETAMINOPHEN [Suspect]
     Indication: MIGRAINE
     Route: 048
  2. EXTRA STRENGTH TYLENOL [Suspect]
  3. EXTRA STRENGTH TYLENOL [Suspect]
     Indication: HEADACHE
  4. ASPIRIN [Suspect]
     Indication: PRODUCT USED FOR UNKNOWN INDICATION
  5. ACETAMINOPHEN [Suspect]
     Indication: TENSION HEADACHE
     Route: 048

REACTIONS (4)
  - HYPERSENSITIVITY [None]
  - EYE PRURITUS [None]
  - EYE SWELLING [None]
  - DYSPNOEA [None]
